FAERS Safety Report 8026069-3 (Version None)
Quarter: 2012Q1

REPORT INFORMATION
  Report Type: 
  Country: None (occurrence: None)
  Receive Date: 20120105
  Receipt Date: 20110602
  Transmission Date: 20120608
  Serious: No
  Sender: FDA-Public Use
  Company Number: US-ABBOTT-11P-163-0730611-00

PATIENT
  Sex: Female
  Weight: 61.744 kg

DRUGS (2)
  1. VITAMIN D [Concomitant]
     Indication: PRODUCT USED FOR UNKNOWN INDICATION
  2. SYNTHROID [Suspect]
     Indication: THYROID CANCER
     Dates: start: 20060101

REACTIONS (2)
  - POOR QUALITY SLEEP [None]
  - JOINT STIFFNESS [None]
